FAERS Safety Report 12239091 (Version 2)
Quarter: 2016Q2

REPORT INFORMATION
  Report Type: Report from Study
  Country: FR (occurrence: FR)
  Receive Date: 20160405
  Receipt Date: 20160407
  Transmission Date: 20160815
  Serious: Yes (Death, Hospitalization, Other)
  Sender: FDA-Public Use
  Company Number: PHHO2011FR14688

PATIENT
  Age: 65 Year
  Sex: Female
  Weight: 81 kg

DRUGS (9)
  1. COMPARATOR PACLITAXEL [Suspect]
     Active Substance: PACLITAXEL
     Indication: BREAST CANCER METASTATIC
     Dosage: 107 MG, UNK
     Route: 065
     Dates: start: 20110519, end: 20110821
  2. TUSSIPAX                           /01342601/ [Concomitant]
     Active Substance: CODEINE\ETHYLMORPHINE HYDROCHLORIDE
     Indication: COUGH
     Dosage: UNK
     Route: 048
     Dates: start: 20110808, end: 20110902
  3. AFINITOR [Suspect]
     Active Substance: EVEROLIMUS
     Indication: BREAST CANCER METASTATIC
     Dosage: UNK
     Route: 048
     Dates: start: 20110519, end: 20110629
  4. AFINITOR [Suspect]
     Active Substance: EVEROLIMUS
     Dosage: UNK
     Route: 048
     Dates: start: 20110630, end: 20110821
  5. LOVENOX [Concomitant]
     Active Substance: ENOXAPARIN SODIUM
     Indication: PRODUCT USED FOR UNKNOWN INDICATION
     Dosage: UNK
     Route: 065
  6. TAHOR [Concomitant]
     Active Substance: ATORVASTATIN CALCIUM
     Indication: PRODUCT USED FOR UNKNOWN INDICATION
     Dosage: 20 MG, QD
     Route: 048
  7. COMPARATOR TRASTUZUMAB [Suspect]
     Active Substance: TRASTUZUMAB
     Indication: BREAST CANCER METASTATIC
     Dosage: 164 MG, UNK
     Route: 065
     Dates: start: 20110519, end: 20110821
  8. CALCIO D3 [Concomitant]
     Indication: HYPOCALCAEMIA
     Dosage: 500 MG, UNK
     Route: 048
     Dates: start: 20110609, end: 20110906
  9. INEXIUM//ESOMEPRAZOLE MAGNESIUM [Concomitant]
     Active Substance: ESOMEPRAZOLE MAGNESIUM
     Indication: PRODUCT USED FOR UNKNOWN INDICATION
     Dosage: UNK
     Route: 065

REACTIONS (3)
  - Malignant neoplasm progression [Fatal]
  - Pneumonitis [Recovered/Resolved]
  - Acute kidney injury [Recovered/Resolved]

NARRATIVE: CASE EVENT DATE: 20110818
